FAERS Safety Report 7716694-9 (Version None)
Quarter: 2011Q3

REPORT INFORMATION
  Report Type: 
  Country: None (occurrence: None)
  Receive Date: 20110829
  Receipt Date: 20110818
  Transmission Date: 20111222
  Serious: Yes (Other)
  Sender: FDA-Public Use
  Company Number: JP-JNJFOC-20110700751

PATIENT
  Sex: Female

DRUGS (7)
  1. LOSARTAN POTASSIUM [Concomitant]
     Route: 048
  2. ALENDRONATE SODIUM [Concomitant]
     Route: 048
  3. METHOTREXATE [Concomitant]
     Indication: RHEUMATOID ARTHRITIS
     Route: 048
     Dates: start: 20041101
  4. FOLIC ACID [Concomitant]
     Route: 048
  5. MARZULENE-S [Concomitant]
     Route: 048
  6. PREDNISOLONE [Concomitant]
     Route: 048
     Dates: start: 20030101
  7. REMICADE [Suspect]
     Indication: RHEUMATOID ARTHRITIS
     Route: 042
     Dates: start: 20110517

REACTIONS (2)
  - MYASTHENIA GRAVIS [None]
  - EYELID PTOSIS [None]
